FAERS Safety Report 8623160 (Version 2)
Quarter: 2012Q4

REPORT INFORMATION
  Report Type: 
  Country: BR (occurrence: BR)
  Receive Date: 20120620
  Receipt Date: 20121212
  Transmission Date: 20130627
  Serious: Yes (Hospitalization, Other)
  Sender: FDA-Public Use
  Company Number: BR-BAYER-2012-059060

PATIENT
  Age: 30 Year
  Sex: Female
  Weight: 60 kg

DRUGS (2)
  1. MIRENA [Suspect]
     Indication: PREVENTION
     Dosage: 20 ?g/d, CONT
     Route: 015
     Dates: start: 200206, end: 20060424
  2. HOMEOPATHIC PREPARATION [Concomitant]
     Dosage: UNK
     Route: 048
     Dates: start: 2006, end: 200701

REACTIONS (6)
  - Caesarean section [Recovered/Resolved]
  - Malaise [None]
  - Premature separation of placenta [None]
  - Pregnancy with contraceptive device [Recovered/Resolved]
  - Amenorrhoea [Recovered/Resolved]
  - Procedural pain [None]
